FAERS Safety Report 25354926 (Version 1)
Quarter: 2025Q2

REPORT INFORMATION
  Report Type: Spontaneous
  Country: US (occurrence: US)
  Receive Date: 20250524
  Receipt Date: 20250524
  Transmission Date: 20250716
  Serious: No
  Sender: SANOFI AVENTIS
  Company Number: US-SA-2025SA147747

PATIENT
  Sex: Female

DRUGS (9)
  1. DUPIXENT [Suspect]
     Active Substance: DUPILUMAB
     Dosage: 300 MG, QOW
     Route: 058
     Dates: start: 20241207
  2. BENZONATATE [Concomitant]
     Active Substance: BENZONATATE
  3. COUGH DM [Concomitant]
     Active Substance: DEXTROMETHORPHAN HYDROBROMIDE
  4. HERBALS [Concomitant]
     Active Substance: HERBALS
  5. Adult multivitamin [Concomitant]
  6. OREGANO LEAF OIL [Concomitant]
     Active Substance: OREGANO LEAF OIL
  7. VITAMIN C [Concomitant]
     Active Substance: ASCORBIC ACID
  8. VITAMIN D [Concomitant]
     Active Substance: VITAMIN D NOS
  9. ZINC [Concomitant]
     Active Substance: ZINC

REACTIONS (1)
  - Condition aggravated [Unknown]
